FAERS Safety Report 8826584 (Version 1)
Quarter: 2012Q4

REPORT INFORMATION
  Report Type: 
  Country: GB (occurrence: GB)
  Receive Date: 20121005
  Receipt Date: 20121005
  Transmission Date: 20130627
  Serious: Yes (Other)
  Sender: FDA-Public Use
  Company Number: PHHY2012GB084712

PATIENT
  Age: 29 Year
  Sex: Female
  Weight: 59.87 kg

DRUGS (2)
  1. CITALOPRAM [Suspect]
     Indication: STRESS
     Route: 048
     Dates: start: 20031219, end: 20031229
  2. PREGABALIN [Concomitant]

REACTIONS (7)
  - Psychological trauma [Not Recovered/Not Resolved]
  - Suicidal ideation [Not Recovered/Not Resolved]
  - Hallucination [Unknown]
  - Aggression [Unknown]
  - Anger [Unknown]
  - Violence-related symptom [Unknown]
  - Thinking abnormal [Unknown]
